FAERS Safety Report 11897613 (Version 6)
Quarter: 2016Q2

REPORT INFORMATION
  Report Type: Report from Study
  Country: US (occurrence: US)
  Receive Date: 20160108
  Receipt Date: 20160621
  Transmission Date: 20160815
  Serious: Yes (Hospitalization, Other)
  Sender: FDA-Public Use
  Company Number: US-AMGEN-USASL2016000527

PATIENT
  Age: 64 Year
  Sex: Male
  Weight: 101.59 kg

DRUGS (5)
  1. FISH OIL [Concomitant]
     Active Substance: FISH OIL
     Indication: LIPIDS
     Dosage: 1200 G, BID
     Route: 065
     Dates: start: 201505
  2. METOPROLOL L [Concomitant]
     Indication: CORONARY ARTERY DISEASE
     Dosage: 125 UNIT, QD
     Route: 048
     Dates: start: 2013
  3. ASA [Concomitant]
     Active Substance: ASPIRIN
     Indication: CORONARY ARTERY DISEASE
     Dosage: 325 UNIT, QD
     Route: 048
     Dates: start: 2013
  4. AMLODIPINE [Concomitant]
     Active Substance: AMLODIPINE BESYLATE
     Indication: HYPERTENSION
     Dosage: 10 UNIT, QD
     Route: 048
     Dates: start: 20141014
  5. REPATHA [Suspect]
     Active Substance: EVOLOCUMAB
     Indication: BLOOD CHOLESTEROL
     Dosage: 140 MG, Q2WK
     Route: 058
     Dates: start: 20151031, end: 20151225

REACTIONS (3)
  - Arthropod bite [Unknown]
  - Anaphylactic reaction [Recovered/Resolved]
  - Food allergy [Unknown]

NARRATIVE: CASE EVENT DATE: 20160201
